FAERS Safety Report 19645789 (Version 2)
Quarter: 2022Q2

REPORT INFORMATION
  Report Type: Report from Study
  Country: IT (occurrence: IT)
  Receive Date: 20210802
  Receipt Date: 20220409
  Transmission Date: 20220720
  Serious: Yes (Other)
  Sender: FDA-Public Use
  Company Number: None

PATIENT
  Age: 59 Year
  Sex: Female

DRUGS (4)
  1. PACLITAXEL [Suspect]
     Active Substance: PACLITAXEL
     Indication: Ovarian neoplasm
     Dosage: 270MG
     Route: 042
     Dates: start: 20210506, end: 20210506
  2. SOLU-MEDROL [Concomitant]
     Active Substance: METHYLPREDNISOLONE SODIUM SUCCINATE
     Indication: Premedication
     Dosage: 500 MG / 8 ML POWDER AND SOLVENT FOR INJECTABLE SOLUTION
     Dates: start: 20210506, end: 20210506
  3. AKYNZEO (NETUPITANT\PALONOSETRON) [Concomitant]
     Active Substance: NETUPITANT\PALONOSETRON
     Indication: Premedication
     Dates: start: 20210506, end: 20210506
  4. TRIMETON [Concomitant]
     Active Substance: CHLORPHENIRAMINE MALEATE
     Indication: Premedication
     Dosage: STRENGTH : 10 MG/ML
     Dates: start: 20210506, end: 20210506

REACTIONS (2)
  - Dermatitis exfoliative generalised [Recovered/Resolved]
  - Generalised oedema [Recovered/Resolved]

NARRATIVE: CASE EVENT DATE: 20210506
